FAERS Safety Report 23648205 (Version 1)
Quarter: 2024Q1

REPORT INFORMATION
  Report Type: Spontaneous
  Country: GB (occurrence: GB)
  Receive Date: 20240319
  Receipt Date: 20240319
  Transmission Date: 20240410
  Serious: Yes (Disabling)
  Sender: FDA-Public Use
  Company Number: None

PATIENT
  Age: 56 Year
  Sex: Male

DRUGS (7)
  1. CIPROFLOXACIN [Suspect]
     Active Substance: CIPROFLOXACIN
     Indication: Product used for unknown indication
     Dosage: 1 DOSAGE FORM, BID (ONE TO BE TAKEN TWICE A DAY)
     Route: 065
  2. AMITRIPTYLINE [Concomitant]
     Active Substance: AMITRIPTYLINE
     Dosage: 1 DOSAGE FORM, HS (ONE TO BE TAKEN AT NIGHT)
     Route: 065
     Dates: start: 20240307
  3. AMOXICILLIN\CLAVULANATE POTASSIUM [Concomitant]
     Active Substance: AMOXICILLIN\CLAVULANATE POTASSIUM
     Indication: Urinary retention
     Dosage: 1 DOSAGE FORM, TID (ONE TO BE TAKEN THREE TIMES A DAY (4 WEEKS AS PER UROLOGIST)
     Route: 065
     Dates: start: 20240202, end: 20240302
  4. DIAZEPAM [Concomitant]
     Active Substance: DIAZEPAM
     Dosage: 1 DOSAGE FORM, HS (ONE TO BE TAKEN AT NIGHT USE SPARINGLY AWARE OF SIDE EFFECT OF ADDICTION AND DEPE
     Route: 065
     Dates: start: 20240307
  5. EZETIMIBE [Concomitant]
     Active Substance: EZETIMIBE
     Dosage: 1 DOSAGE FORM, QD (ONE TO BE TAKEN EACH DAY)
     Route: 065
     Dates: start: 20240105, end: 20240217
  6. PIROXICAM [Concomitant]
     Active Substance: PIROXICAM
     Dosage: 100 GRAM (APPLY THREE OR FOUR TIMES A DAY)
     Route: 065
     Dates: start: 20240307
  7. TAMSULOSIN [Concomitant]
     Active Substance: TAMSULOSIN
     Indication: Urinary retention
     Dosage: 1 DOSAGE FORM, QD (ONE TO BE TAKEN EACH DAY)
     Route: 065
     Dates: start: 20240202

REACTIONS (1)
  - Myopathy [Not Recovered/Not Resolved]
